FAERS Safety Report 9238734 (Version 6)
Quarter: 2014Q1

REPORT INFORMATION
  Report Type: Spontaneous
  Country: US (occurrence: US)
  Receive Date: 20130418
  Receipt Date: 20140227
  Transmission Date: 20141002
  Serious: Yes (Death, Life-Threatening, Other)
  Sender: FDA-Public Use
  Company Number: US-009507513-1304USA007691

PATIENT
  Sex: Female
  Weight: 95.24 kg

DRUGS (10)
  1. JANUVIA [Suspect]
     Indication: TYPE 2 DIABETES MELLITUS
     Dosage: 100 MG, QD
     Route: 048
     Dates: end: 20080915
  2. JANUMET [Suspect]
     Indication: TYPE 2 DIABETES MELLITUS
     Dosage: 1000 MG/50 MG, BID
     Route: 048
     Dates: start: 20090203, end: 20101228
  3. BYETTA [Suspect]
     Indication: TYPE 2 DIABETES MELLITUS
     Dosage: 5 MICROGRAM, BID
     Dates: start: 20080915
  4. BYETTA [Suspect]
     Dosage: 10 MICROGRAM, BID
     Dates: start: 20081030, end: 20090203
  5. GLYBURIDE [Concomitant]
     Indication: TYPE 2 DIABETES MELLITUS
     Dosage: 5 MG, QAM
  6. GLYBURIDE [Concomitant]
     Dosage: 10 MG, QPM
  7. GLUCOPHAGE [Concomitant]
     Indication: TYPE 2 DIABETES MELLITUS
     Dosage: 1000 MG, BID
  8. DIOVAN [Concomitant]
     Indication: HYPERTENSION
     Dosage: 160 MG, QD
  9. XANAX [Concomitant]
     Indication: ANXIETY
     Dosage: UNK
  10. ALLEGRA [Concomitant]
     Indication: RHINITIS ALLERGIC
     Dosage: 60 MG, BID
     Route: 048
     Dates: start: 20080513

REACTIONS (21)
  - Pancreatic carcinoma [Fatal]
  - Metastases to liver [Unknown]
  - Renal failure chronic [Unknown]
  - Goitre [Unknown]
  - Neuropathy peripheral [Unknown]
  - Retinopathy [Unknown]
  - Hyperkalaemia [Unknown]
  - Back injury [Recovering/Resolving]
  - Fall [Unknown]
  - White blood cells urine [Unknown]
  - Cholelithiasis [Unknown]
  - Dry skin [Unknown]
  - Dyspnoea [Unknown]
  - Palpitations [Unknown]
  - Blood glucose fluctuation [Unknown]
  - Hypoglycaemia [Unknown]
  - Weight decreased [Unknown]
  - Insomnia [Unknown]
  - Refusal of treatment by patient [Unknown]
  - Rash [Unknown]
  - Drug ineffective [Unknown]
